FAERS Safety Report 5241475-8 (Version None)
Quarter: 2007Q1

REPORT INFORMATION
  Report Type: 
  Country: None (occurrence: None)
  Receive Date: 20070220
  Receipt Date: 20070214
  Transmission Date: 20070707
  Serious: Yes (Hospitalization)
  Sender: FDA-Public Use
  Company Number: US-GLAXOSMITHKLINE-A0639568A

PATIENT
  Age: 74 Year
  Sex: Female

DRUGS (7)
  1. ADVAIR DISKUS 100/50 [Suspect]
     Indication: ASTHMA
     Dosage: 1BLS TWICE PER DAY
     Route: 055
  2. AVALIDE [Concomitant]
  3. MOBIC [Concomitant]
  4. CRESTOR [Concomitant]
  5. CLARINEX [Concomitant]
  6. POTASSIUM ACETATE [Concomitant]
  7. FOLIC ACID [Concomitant]

REACTIONS (2)
  - ALOPECIA [None]
  - BRONCHITIS [None]
